FAERS Safety Report 4698586-5 (Version None)
Quarter: 2005Q2

REPORT INFORMATION
  Report Type: 
  Country: None (occurrence: None)
  Receive Date: 20050622
  Receipt Date: 20050614
  Transmission Date: 20051028
  Serious: Yes (Other)
  Sender: FDA-Public Use
  Company Number: 2005089109

PATIENT
  Age: 47 Year
  Sex: Male
  Weight: 108.8633 kg

DRUGS (2)
  1. LIPITOR [Suspect]
     Indication: BLOOD CHOLESTEROL INCREASED
     Dosage: 20 MG (20 MG, 1 IN 1 D), ORAL
     Route: 048
  2. ALLEGRA-D [Concomitant]

REACTIONS (3)
  - COLOUR BLINDNESS [None]
  - IMPAIRED WORK ABILITY [None]
  - VISION BLURRED [None]
